FAERS Safety Report 15254171 (Version 2)
Quarter: 2019Q2

REPORT INFORMATION
  Report Type: Spontaneous
  Country: US (occurrence: US)
  Receive Date: 20180808
  Receipt Date: 20190516
  Transmission Date: 20190711
  Serious: Yes (Other)
  Sender: FDA-Public Use
  Company Number: US-ASTRAZENECA-2018SE97952

PATIENT
  Sex: Female
  Weight: 70.3 kg

DRUGS (14)
  1. PREVACID 24 HR [Suspect]
     Active Substance: LANSOPRAZOLE
     Route: 065
     Dates: start: 2003, end: 2017
  2. PRILOSEC OTC [Suspect]
     Active Substance: OMEPRAZOLE MAGNESIUM
     Route: 048
     Dates: start: 2003, end: 2017
  3. PREMARIN [Concomitant]
     Active Substance: ESTROGENS, CONJUGATED
  4. TRAMADOL. [Concomitant]
     Active Substance: TRAMADOL
  5. ZOCOR [Concomitant]
     Active Substance: SIMVASTATIN
  6. WELLBUTRIN [Concomitant]
     Active Substance: BUPROPION HYDROCHLORIDE
  7. ALPRAZOLAM. [Concomitant]
     Active Substance: ALPRAZOLAM
  8. ZEGERID OTC [Suspect]
     Active Substance: OMEPRAZOLE\SODIUM BICARBONATE
     Route: 065
     Dates: start: 2003, end: 2017
  9. FUROSEMIDE. [Concomitant]
     Active Substance: FUROSEMIDE
  10. ZEGERID [Suspect]
     Active Substance: OMEPRAZOLE\SODIUM BICARBONATE
     Indication: GASTROOESOPHAGEAL REFLUX DISEASE
     Route: 065
     Dates: start: 2009
  11. FLUCONAZOLE. [Concomitant]
     Active Substance: FLUCONAZOLE
  12. VYTORIN [Concomitant]
     Active Substance: EZETIMIBE\SIMVASTATIN
  13. GABAPENTIN. [Concomitant]
     Active Substance: GABAPENTIN
  14. CELEBREX [Concomitant]
     Active Substance: CELECOXIB

REACTIONS (1)
  - Chronic kidney disease [Not Recovered/Not Resolved]
